FAERS Safety Report 4553539-2 (Version None)
Quarter: 2004Q4

REPORT INFORMATION
  Report Type: 
  Country: None (occurrence: None)
  Receive Date: 20041227
  Receipt Date: 20041007
  Transmission Date: 20050328
  Serious: No
  Sender: FDA-Public Use
  Company Number: 04P-163-0276625-00

PATIENT
  Sex: Female

DRUGS (1)
  1. HUMIRA [Suspect]

REACTIONS (1)
  - INJECTION SITE BURNING [None]
